FAERS Safety Report 5280314-6 (Version None)
Quarter: 2007Q1

REPORT INFORMATION
  Report Type: 
  Country: None (occurrence: None)
  Receive Date: 20070329
  Receipt Date: 20070328
  Transmission Date: 20070707
  Serious: Yes (Hospitalization)
  Sender: FDA-Public Use
  Company Number: JP-JPN-A200701335

PATIENT
  Age: 11 Year
  Sex: Male

DRUGS (5)
  1. RELENZA [Suspect]
     Indication: INFLUENZA
     Dosage: 10MG PER DAY
     Route: 055
     Dates: start: 20070315, end: 20070315
  2. CEFZON [Concomitant]
     Route: 048
  3. CHINESE MEDICINE [Concomitant]
     Route: 048
  4. DASEN [Concomitant]
     Route: 048
  5. ASVERIN [Concomitant]
     Route: 048

REACTIONS (1)
  - ABNORMAL BEHAVIOUR [None]
